FAERS Safety Report 8081122-3 (Version None)
Quarter: 2012Q1

REPORT INFORMATION
  Report Type: 
  Country: None (occurrence: None)
  Receive Date: 20120130
  Receipt Date: 20120125
  Transmission Date: 20120608
  Serious: Yes (Death, Disabling, Other)
  Sender: FDA-Public Use
  Company Number: US-GLAXOSMITHKLINE-A0885032A

PATIENT
  Age: 60 Year
  Sex: Male

DRUGS (11)
  1. FLUCONAZOLE [Concomitant]
  2. LORAZEPAM [Concomitant]
  3. MYCOPHENOLATE MOFETIL (CELLCEPT) [Concomitant]
  4. LORTAB [Concomitant]
  5. AZO-SULFAMETHOXAZOLE [Concomitant]
  6. OMEPRAZOLE [Concomitant]
  7. PROMACTA [Suspect]
     Indication: IDIOPATHIC THROMBOCYTOPENIC PURPURA
     Dosage: 50MG PER DAY
     Route: 048
     Dates: start: 20090901, end: 20101124
  8. AMLODIPINE [Concomitant]
  9. LOVASTATIN [Concomitant]
  10. TOPROL-XL [Concomitant]
  11. CORTICOSTEROIDS [Concomitant]
     Indication: IDIOPATHIC THROMBOCYTOPENIC PURPURA

REACTIONS (5)
  - BLINDNESS [None]
  - VISION BLURRED [None]
  - SEPSIS [None]
  - CATARACT [None]
  - VISUAL IMPAIRMENT [None]
